FAERS Safety Report 9852940 (Version 1)
Quarter: 2014Q1

REPORT INFORMATION
  Report Type: Report from Study
  Country: GB (occurrence: GB)
  Receive Date: 20140129
  Receipt Date: 20140129
  Transmission Date: 20141002
  Serious: Yes (Death, Hospitalization)
  Sender: FDA-Public Use
  Company Number: GB-JNJFOC-20140114781

PATIENT
  Age: 70 Year
  Sex: Male
  Weight: 142 kg

DRUGS (12)
  1. STELARA [Suspect]
     Indication: PSORIASIS
     Route: 058
     Dates: start: 20120418
  2. ASPIRIN [Concomitant]
     Route: 065
     Dates: start: 20081125
  3. ATENOLOL [Concomitant]
     Route: 065
     Dates: start: 20081125
  4. FUROSEMIDE [Concomitant]
     Route: 065
     Dates: start: 20081125
  5. SIMVASTATIN [Concomitant]
     Route: 065
     Dates: start: 20081125
  6. LOSARTAN [Concomitant]
     Route: 065
     Dates: start: 20081125
  7. METFORMIN [Concomitant]
     Route: 065
     Dates: start: 20081125
  8. ROSIGLITAZONE [Concomitant]
     Route: 065
     Dates: start: 20081125
  9. EZETIMIBE [Concomitant]
     Route: 065
     Dates: start: 20100515
  10. AMIODARONE [Concomitant]
     Route: 065
     Dates: start: 20110815
  11. WARFARIN [Concomitant]
     Route: 065
     Dates: start: 20110815
  12. BISOPROLOL [Concomitant]
     Route: 065
     Dates: start: 20111015

REACTIONS (2)
  - Non-Hodgkin^s lymphoma [Fatal]
  - Sepsis [Fatal]
